FAERS Safety Report 7932743-7 (Version None)
Quarter: 2011Q4

REPORT INFORMATION
  Report Type: 
  Country: None (occurrence: None)
  Receive Date: 20111122
  Receipt Date: 20111110
  Transmission Date: 20120403
  Serious: Yes (Other)
  Sender: FDA-Public Use
  Company Number: IS-JNJFOC-20111100294

PATIENT
  Sex: Male
  Weight: 49 kg

DRUGS (2)
  1. REMICADE [Suspect]
     Indication: CROHN'S DISEASE
     Dosage: DOSE: 4-5 MG/ KG
     Route: 042
     Dates: start: 20080101
  2. REMICADE [Suspect]
     Route: 042

REACTIONS (4)
  - PAIN IN EXTREMITY [None]
  - SOFT TISSUE INFLAMMATION [None]
  - OSTEITIS [None]
  - BONE DISORDER [None]
